FAERS Safety Report 7959953-7 (Version None)
Quarter: 2011Q4

REPORT INFORMATION
  Report Type: 
  Country: None (occurrence: None)
  Receive Date: 20111201
  Receipt Date: 20111115
  Transmission Date: 20120403
  Serious: Yes (Death)
  Sender: FDA-Public Use
  Company Number: 2009-074

PATIENT
  Age: 38 Year
  Sex: Male

DRUGS (1)
  1. FAZACLO ODT [Suspect]
     Dosage: 375 MG, QD, ORAL
     Route: 048
     Dates: start: 20050103, end: 20090502

REACTIONS (5)
  - SCHIZOPHRENIA [None]
  - ARTERIOSCLEROSIS [None]
  - HEAD INJURY [None]
  - CONGESTIVE CARDIOMYOPATHY [None]
  - PHYSICAL ASSAULT [None]
